FAERS Safety Report 7812203 (Version 4)
Quarter: 2013Q1

REPORT INFORMATION
  Report Type: Spontaneous
  Country: US (occurrence: US)
  Receive Date: 20110215
  Receipt Date: 20130308
  Transmission Date: 20140127
  Serious: Yes (Life-Threatening, Hospitalization, Disabling, Other)
  Sender: FDA-Public Use
  Company Number: US-BAYER-2011-010710

PATIENT
  Sex: Female

DRUGS (1)
  1. BETASERON [Suspect]
     Indication: MULTIPLE SCLEROSIS
     Dosage: 0.3 MG, QOD
     Dates: start: 200408, end: 20091216

REACTIONS (30)
  - Injection site pain [None]
  - Pyrexia [None]
  - Hyperhidrosis [None]
  - Pain [None]
  - Chills [None]
  - Nausea [None]
  - Injection site inflammation [None]
  - Local swelling [None]
  - Oedema [None]
  - Bacterial infection [None]
  - Pain [None]
  - Abasia [None]
  - Blood pressure increased [None]
  - Pyrexia [None]
  - Pain [None]
  - Malaise [None]
  - White blood cell count increased [None]
  - Abscess [None]
  - Necrotising fasciitis [None]
  - Necrotising fasciitis [None]
  - Necrotising fasciitis [None]
  - Anxiety [None]
  - Disability [None]
  - Pain [None]
  - Oedema [None]
  - Cognitive disorder [None]
  - Asthenia [None]
  - Injury [None]
  - Injury [None]
  - Deformity [None]
